FAERS Safety Report 7063586-7 (Version None)
Quarter: 2010Q4

REPORT INFORMATION
  Report Type: 
  Country: None (occurrence: None)
  Receive Date: 20101026
  Receipt Date: 20100809
  Transmission Date: 20110411
  Serious: No
  Sender: FDA-Public Use
  Company Number: US-ABBOTT-10P-163-0662404-00

PATIENT
  Sex: Female

DRUGS (4)
  1. LUPRON DEPOT [Suspect]
     Indication: ENDOMETRIOSIS
  2. AYGESTIN [Concomitant]
     Indication: PROPHYLAXIS
  3. CALCIUM [Concomitant]
     Indication: OSTEOPOROSIS PROPHYLAXIS
  4. VITAMIN D [Concomitant]
     Indication: OSTEOPOROSIS PROPHYLAXIS

REACTIONS (5)
  - ABDOMINAL PAIN [None]
  - FATIGUE [None]
  - HOT FLUSH [None]
  - MIGRAINE [None]
  - NIGHT SWEATS [None]
